FAERS Safety Report 12631603 (Version 2)
Quarter: 2016Q3

REPORT INFORMATION
  Report Type: Spontaneous
  Country: US (occurrence: US)
  Receive Date: 20160808
  Receipt Date: 20160808
  Transmission Date: 20161109
  Serious: No
  Sender: FDA-Public Use
  Company Number: US-BEH-2015054881

PATIENT
  Sex: Female
  Weight: 54 kg

DRUGS (12)
  1. VITAMIN D [Concomitant]
     Active Substance: CHOLECALCIFEROL
  2. LIDOCAINE/PRILOCAINE [Concomitant]
     Active Substance: LIDOCAINE\PRILOCAINE
  3. IBUPROFEN. [Concomitant]
     Active Substance: IBUPROFEN
  4. HIZENTRA [Suspect]
     Active Substance: HUMAN IMMUNOGLOBULIN G
     Route: 058
  5. CLOBETASOL [Concomitant]
     Active Substance: CLOBETASOL
  6. NORCO [Concomitant]
     Active Substance: ACETAMINOPHEN\HYDROCODONE BITARTRATE
  7. HIZENTRA [Suspect]
     Active Substance: HUMAN IMMUNOGLOBULIN G
     Indication: IMMUNODEFICIENCY COMMON VARIABLE
     Route: 058
  8. ACULAR [Concomitant]
     Active Substance: KETOROLAC TROMETHAMINE
  9. EPIPEN [Concomitant]
     Active Substance: EPINEPHRINE
     Indication: ANAPHYLACTIC REACTION
  10. BACLOFEN. [Concomitant]
     Active Substance: BACLOFEN
  11. CENTRUM SILVER [Concomitant]
     Active Substance: MINERALS\VITAMINS
  12. ENT-SOL NASAL WASH [Concomitant]

REACTIONS (1)
  - Pruritus [Unknown]
